FAERS Safety Report 12553322 (Version 2)
Quarter: 2016Q3

REPORT INFORMATION
  Report Type: Report from Study
  Country: BR (occurrence: BR)
  Receive Date: 20160713
  Receipt Date: 20160822
  Transmission Date: 20161109
  Serious: Yes (Death, Hospitalization)
  Sender: FDA-Public Use
  Company Number: BR-JNJFOC-20160513815

PATIENT
  Age: 60 Year
  Sex: Male

DRUGS (4)
  1. OMEPRAZOLE. [Concomitant]
     Active Substance: OMEPRAZOLE
     Route: 065
  2. METOCLOPRAMIDE. [Concomitant]
     Active Substance: METOCLOPRAMIDE
     Route: 065
  3. IMBRUVICA [Suspect]
     Active Substance: IBRUTINIB
     Indication: CHRONIC LYMPHOCYTIC LEUKAEMIA
     Route: 048
     Dates: start: 20151203, end: 20160721
  4. RANITADINE [Concomitant]
     Route: 065

REACTIONS (15)
  - Drug ineffective [Unknown]
  - Adverse event [Unknown]
  - Pyrexia [Fatal]
  - Pain [Fatal]
  - Fall [Unknown]
  - Abdominal pain upper [Unknown]
  - Dysgeusia [Unknown]
  - Inadequate diet [Unknown]
  - Vomiting [Unknown]
  - Tremor [Fatal]
  - Asthenia [Unknown]
  - Polydipsia [Unknown]
  - Nausea [Unknown]
  - Weight decreased [Unknown]
  - Malaise [Unknown]

NARRATIVE: CASE EVENT DATE: 2016
